FAERS Safety Report 5796782-7 (Version None)
Quarter: 2008Q3

REPORT INFORMATION
  Report Type: 
  Country: None (occurrence: None)
  Receive Date: 20080701
  Receipt Date: 20080624
  Transmission Date: 20090109
  Serious: Yes (Death)
  Sender: FDA-Public Use
  Company Number: SE-ASTRAZENECA-1999AH00057

PATIENT
  Age: 73 Year
  Sex: Female

DRUGS (6)
  1. LOSEC I.V. [Suspect]
     Indication: PALPITATIONS
     Route: 048
     Dates: start: 19971120, end: 19980926
  2. LOSEC I.V. [Suspect]
     Indication: HYPOTHYROIDISM
     Route: 048
     Dates: start: 19971120, end: 19980926
  3. LOSEC I.V. [Suspect]
     Indication: GASTRIC ULCER
     Route: 048
     Dates: start: 19971120, end: 19980926
  4. NOVALGIN [Suspect]
     Indication: PAIN
     Route: 048
     Dates: start: 19980227, end: 19980926
  5. DIGOXIN [Concomitant]
     Indication: PALPITATIONS
     Route: 048
  6. LEVOTHYROXINE SODIUM [Concomitant]
     Indication: HYPOTHYROIDISM
     Route: 048

REACTIONS (1)
  - HEPATIC NECROSIS [None]
